FAERS Safety Report 17520864 (Version 1)
Quarter: 2020Q1

REPORT INFORMATION
  Report Type: Report from Study
  Country: BR (occurrence: BR)
  Receive Date: 20200310
  Receipt Date: 20200310
  Transmission Date: 20200409
  Serious: Yes (Other)
  Sender: FDA-Public Use
  Company Number: PHHY2019BR020102

PATIENT
  Age: 68 Year
  Sex: Female
  Weight: 47 kg

DRUGS (6)
  1. COSENTYX [Suspect]
     Active Substance: SECUKINUMAB
     Dosage: 300 MG, QW
     Route: 065
     Dates: start: 20181220
  2. ETANERCEPT [Suspect]
     Active Substance: ETANERCEPT
     Indication: PSORIATIC ARTHROPATHY
     Route: 065
  3. ARAVA [Concomitant]
     Active Substance: LEFLUNOMIDE
     Indication: PRODUCT USED FOR UNKNOWN INDICATION
     Route: 065
  4. COSENTYX [Suspect]
     Active Substance: SECUKINUMAB
     Dosage: 300 MG, QW
     Route: 065
     Dates: start: 20181227
  5. COSENTYX [Suspect]
     Active Substance: SECUKINUMAB
     Indication: PSORIATIC ARTHROPATHY
     Dosage: 300 MG, QW
     Route: 058
     Dates: start: 20181206
  6. COSENTYX [Suspect]
     Active Substance: SECUKINUMAB
     Dosage: 300 MG, QW
     Route: 065
     Dates: start: 20181213

REACTIONS (18)
  - Fatigue [Unknown]
  - Psoriasis [Not Recovered/Not Resolved]
  - Drug ineffective [Not Recovered/Not Resolved]
  - Femur fracture [Unknown]
  - Emotional distress [Unknown]
  - Anxiety [Unknown]
  - Memory impairment [Unknown]
  - Fall [Unknown]
  - Gait disturbance [Unknown]
  - Inappropriate schedule of product administration [Not Recovered/Not Resolved]
  - Product prescribing error [Not Recovered/Not Resolved]
  - Flushing [Unknown]
  - Knee deformity [Not Recovered/Not Resolved]
  - Tachycardia [Unknown]
  - Malaise [Unknown]
  - Incorrect dose administered [Unknown]
  - Pain [Not Recovered/Not Resolved]
  - Migraine [Not Recovered/Not Resolved]

NARRATIVE: CASE EVENT DATE: 20181206
